FAERS Safety Report 20518014 (Version 1)
Quarter: 2022Q1

REPORT INFORMATION
  Report Type: Report from Study
  Country: CO (occurrence: CO)
  Receive Date: 20220225
  Receipt Date: 20220225
  Transmission Date: 20220423
  Serious: Yes (Hospitalization)
  Sender: FDA-Public Use
  Company Number: CO-ALLERGAN-2206491US

PATIENT
  Sex: Female
  Weight: 64 kg

DRUGS (1)
  1. BOTULINUM TOXIN TYPE A [Suspect]
     Active Substance: BOTULINUM TOXIN TYPE A
     Indication: Migraine
     Dosage: 200 UNITS, SINGLE
     Route: 058
     Dates: start: 20220113, end: 20220113

REACTIONS (5)
  - Gait disturbance [Recovering/Resolving]
  - Migraine [Recovering/Resolving]
  - Speech disorder [Recovering/Resolving]
  - Malaise [Unknown]
  - Incorrect route of product administration [Unknown]

NARRATIVE: CASE EVENT DATE: 20220115
